FAERS Safety Report 9058802 (Version 3)
Quarter: 2013Q1

REPORT INFORMATION
  Report Type: Spontaneous
  Country: NL (occurrence: NL)
  Receive Date: 20130204
  Receipt Date: 20130312
  Transmission Date: 20140127
  Serious: No
  Sender: FDA-Public Use
  Company Number: NL-ACTELION-A-CH2013-78374

PATIENT
  Age: 78 Year
  Sex: Female

DRUGS (7)
  1. TRACLEER [Suspect]
     Indication: PULMONARY ARTERIAL HYPERTENSION
     Dosage: 62.5 MG, BID
     Route: 048
     Dates: start: 20121220, end: 20130125
  2. OMEPRAZOL [Suspect]
     Dosage: 20 MG, UNK
  3. ASA [Suspect]
     Dosage: 80 MG, UNK
  4. FUROSEMIDE [Suspect]
     Dosage: 40 MG, UNK
  5. SILDENAFIL [Suspect]
     Dosage: 40 MG, TID
     Dates: start: 201201
  6. AZITHROMYCIN [Suspect]
     Dosage: 250 MG, Q3WEEK
  7. SPIRONOLACTONE [Suspect]
     Dosage: 25 MG, QD

REACTIONS (6)
  - General physical health deterioration [Recovered/Resolved]
  - No therapeutic response [Unknown]
  - Pulmonary arterial hypertension [Recovered/Resolved]
  - Disease progression [Recovered/Resolved]
  - Dyspnoea [Recovered/Resolved]
  - Exercise tolerance decreased [Recovered/Resolved]
